FAERS Safety Report 10038639 (Version 1)
Quarter: 2014Q1

REPORT INFORMATION
  Report Type: Spontaneous
  Country: AE (occurrence: AE)
  Receive Date: 20140326
  Receipt Date: 20140326
  Transmission Date: 20141002
  Serious: Yes (Other)
  Sender: FDA-Public Use
  Company Number: AE-ABBVIE-14P-166-1214745-00

PATIENT
  Age: 28 Year
  Sex: Male

DRUGS (2)
  1. HUMIRA [Suspect]
     Indication: PSORIASIS
     Route: 058
     Dates: start: 201311
  2. ARCOXIA [Suspect]
     Indication: BACK PAIN
     Route: 048

REACTIONS (3)
  - Toxicity to various agents [Unknown]
  - Skin infection [Unknown]
  - Back pain [Unknown]
